FAERS Safety Report 23250483 (Version 1)
Quarter: 2023Q4

REPORT INFORMATION
  Report Type: Spontaneous
  Country: BE (occurrence: BE)
  Receive Date: 20231201
  Receipt Date: 20231201
  Transmission Date: 20240109
  Serious: Yes (Other)
  Sender: FDA-Public Use
  Company Number: BE-JNJFOC-20231172447

PATIENT
  Age: 63 Year
  Sex: Male
  Weight: 79.6 kg

DRUGS (5)
  1. VELCADE [Suspect]
     Active Substance: BORTEZOMIB
     Indication: Plasmablastic lymphoma
     Dosage: 2.5 MILLIGRAM
     Route: 058
     Dates: start: 20230822, end: 20231027
  2. CYCLOPHOSPHAMIDE [Concomitant]
     Active Substance: CYCLOPHOSPHAMIDE
     Indication: Plasmablastic lymphoma
     Dosage: 750 MILLIGRAM/SQ. METER, Q3WEEKS
     Route: 042
     Dates: start: 20230822
  3. DOXORUBICIN [Concomitant]
     Active Substance: DOXORUBICIN
     Indication: Plasmablastic lymphoma
     Dosage: 50 MILLIGRAM/SQ. METER, Q3WEEKS
     Route: 042
     Dates: start: 20230822
  4. VINCRISTINE [Concomitant]
     Active Substance: VINCRISTINE
     Indication: Plasmablastic lymphoma
     Dosage: 1.4 MILLIGRAM/SQ. METER, Q3WEEKS
     Route: 042
     Dates: start: 20230822
  5. PREDNISOLONE [Concomitant]
     Active Substance: PREDNISOLONE
     Indication: Plasmablastic lymphoma
     Dosage: 100 MILLIGRAM
     Route: 048
     Dates: start: 20230822

REACTIONS (2)
  - Polyneuropathy [Not Recovered/Not Resolved]
  - Off label use [Unknown]

NARRATIVE: CASE EVENT DATE: 20231031
